FAERS Safety Report 12852949 (Version 1)
Quarter: 2016Q4

REPORT INFORMATION
  Report Type: Spontaneous
  Country: US (occurrence: US)
  Receive Date: 20161017
  Receipt Date: 20161017
  Transmission Date: 20170207
  Serious: No
  Sender: FDA-Public Use
  Company Number: US-JAZZ-2016-US-013956

PATIENT
  Sex: Female

DRUGS (13)
  1. ALBUTEROL SULFATE. [Concomitant]
     Active Substance: ALBUTEROL SULFATE
  2. AZITHROMYCIN ANHYDROUS. [Concomitant]
     Active Substance: AZITHROMYCIN ANHYDROUS
  3. ALEVE [Concomitant]
     Active Substance: NAPROXEN SODIUM
  4. GABAPENTIN. [Concomitant]
     Active Substance: GABAPENTIN
  5. VITAMIN D3 [Concomitant]
     Active Substance: CHOLECALCIFEROL
  6. ADDERALL [Suspect]
     Active Substance: AMPHETAMINE ASPARTATE\AMPHETAMINE SULFATE\DEXTROAMPHETAMINE SACCHARATE\DEXTROAMPHETAMINE SULFATE
  7. CYCLOBENZAPRINE [Concomitant]
     Active Substance: CYCLOBENZAPRINE
  8. LORATADINE. [Concomitant]
     Active Substance: LORATADINE
  9. XYREM [Suspect]
     Active Substance: SODIUM OXYBATE
     Indication: NARCOLEPSY
     Dosage: 2.25 G, BID
     Route: 048
     Dates: start: 201511, end: 2015
  10. XYREM [Suspect]
     Active Substance: SODIUM OXYBATE
     Indication: CATAPLEXY
     Dosage: DOSE ADJUSTMENTS
     Route: 048
     Dates: start: 2015, end: 201512
  11. KRILL OIL [Concomitant]
     Active Substance: DIETARY SUPPLEMENT
  12. XYREM [Suspect]
     Active Substance: SODIUM OXYBATE
     Dosage: 4.5 G, BID
     Route: 048
     Dates: start: 201512
  13. CYMBALTA [Concomitant]
     Active Substance: DULOXETINE HYDROCHLORIDE

REACTIONS (3)
  - Hypopituitarism [Not Recovered/Not Resolved]
  - Thyroid disorder [Not Recovered/Not Resolved]
  - Blood cortisol decreased [Not Recovered/Not Resolved]

NARRATIVE: CASE EVENT DATE: 2016
